FAERS Safety Report 11715257 (Version 1)
Quarter: 2015Q4

REPORT INFORMATION
  Report Type: Spontaneous
  Country: US (occurrence: US)
  Receive Date: 20151109
  Receipt Date: 20151109
  Transmission Date: 20160304
  Serious: Yes (Other)
  Sender: FDA-Public Use
  Company Number: US-PFIZER INC-2015372383

PATIENT
  Age: 74 Year
  Sex: Female

DRUGS (22)
  1. VITAMIN B COMPLEX [Concomitant]
     Active Substance: CYANOCOBALAMIN\DEXPANTHENOL\NIACINAMIDE\PYRIDOXINE HYDROCHLORIDE\RIBOFLAVIN 5^-PHOSPHATE SODIUM\THIAMINE HYDROCHLORIDE\VITAMIN B COMPLEX
     Dosage: EVERY OTHER DAY
     Route: 048
  2. PROCHLORPERAZINE MALEATE. [Concomitant]
     Active Substance: PROCHLORPERAZINE MALEATE
     Indication: NAUSEA
     Dosage: 10 MG 1 TABLET, AS NEEDED (EVERY 6 HOURS AS NEEDED )
     Route: 048
     Dates: start: 20150428
  3. RESTASIS [Concomitant]
     Active Substance: CYCLOSPORINE
     Dosage: 0.05 % DROPPERETTE, 2X/DAY
     Route: 047
  4. CELEBREX [Suspect]
     Active Substance: CELECOXIB
     Dosage: 200MG AS DIRECTED AT FOUR TIMES A WEEK
     Dates: start: 20120521
  5. CALCIUM [Concomitant]
     Active Substance: CALCIUM
     Dosage: 600 MG, DAILY
     Route: 048
  6. XGEVA [Concomitant]
     Active Substance: DENOSUMAB
     Dosage: 120 MG, SINGLE
     Route: 058
     Dates: start: 20150728
  7. XGEVA [Concomitant]
     Active Substance: DENOSUMAB
     Dosage: 120 MG, SINGLE
     Route: 058
     Dates: start: 20150929
  8. FEMARA [Concomitant]
     Active Substance: LETROZOLE
     Dosage: 2.5 MG1 TABLET, DAILY
     Route: 048
     Dates: start: 20150821
  9. FLUZONE [Concomitant]
     Active Substance: INFLUENZA A VIRUS A/CALIFORNIA/7/2009 X-179A (H1N1) ANTIGEN (FORMALDEHYDE INACTIVATED)\INFLUENZA A VIRUS A/VICTORIA/210/2009 X-187 (H3N2) ANTIGEN (FORMALDEHYDE INACTIVATED)\INFLUENZA B VIRUS B/BRISBANE/60/2008 ANTIGEN (FORMALDEHYDE INACTIVATED)
     Dosage: 180 MCG/0.5 ML SYRINGE
     Route: 030
     Dates: start: 2014
  10. CENTRUM [Concomitant]
     Active Substance: VITAMINS
     Dosage: UNK
     Dates: start: 20120521
  11. ZANAFLEX [Concomitant]
     Active Substance: TIZANIDINE HYDROCHLORIDE
     Dosage: 2 MG, AS NEEDED
     Route: 048
  12. ZOFRAN [Concomitant]
     Active Substance: ONDANSETRON HYDROCHLORIDE
     Indication: NAUSEA
     Dosage: 8 MG 1 TABLET , AS NEEDED (EVERY 8 HOURS AS NEEDED)
     Route: 048
     Dates: start: 20150428
  13. VITAMIN D3 [Concomitant]
     Active Substance: CHOLECALCIFEROL
     Dosage: 1000 UNIT TABLET 1 TABLET, DAILY
     Route: 048
  14. GABAPENTIN. [Concomitant]
     Active Substance: GABAPENTIN
     Dosage: 300 MG, AS DIRECTED
     Route: 048
  15. COLACE [Concomitant]
     Active Substance: DOCUSATE SODIUM
     Dosage: 1 CAPSULE, 2X/DAY
     Route: 048
  16. DULOXETINE. [Concomitant]
     Active Substance: DULOXETINE
     Dosage: 30 MG, DAILY
     Route: 048
  17. XGEVA [Concomitant]
     Active Substance: DENOSUMAB
     Dosage: 120 MG, SINGLE
     Route: 058
     Dates: start: 20150825
  18. PROTONIX [Suspect]
     Active Substance: PANTOPRAZOLE SODIUM
     Dosage: 40MG TABLET AT 1 TABLET DAILY
     Route: 048
  19. MECLIZINE [Concomitant]
     Active Substance: MECLIZINE\MECLIZINE HYDROCHLORIDE
     Dosage: 12.5 MG 1 TABLET, AS NEEDED
     Route: 048
     Dates: start: 20150929
  20. XGEVA [Concomitant]
     Active Substance: DENOSUMAB
     Dosage: 120 MG, SINGLE
     Route: 058
     Dates: start: 20150428
  21. XGEVA [Concomitant]
     Active Substance: DENOSUMAB
     Dosage: 120 MG, SINGLE
     Route: 058
     Dates: start: 20150630
  22. FISH OIL [Concomitant]
     Active Substance: FISH OIL
     Dosage: 1200 MG, EVERY OTHER DAY
     Route: 048
     Dates: start: 20120521

REACTIONS (3)
  - Invasive lobular breast carcinoma [Unknown]
  - Breast cancer [Unknown]
  - Neoplasm recurrence [Unknown]
